FAERS Safety Report 11801216 (Version 1)
Quarter: 2015Q4

REPORT INFORMATION
  Report Type: Spontaneous
  Country: GB (occurrence: GB)
  Receive Date: 20151204
  Receipt Date: 20151204
  Transmission Date: 20160305
  Serious: Yes (Hospitalization, Other)
  Sender: FDA-Public Use
  Company Number: GB-WATSON-2015-26148

PATIENT
  Age: 93 Year
  Sex: Female

DRUGS (1)
  1. IBANDRONIC ACID (UNKNOWN) [Suspect]
     Active Substance: IBANDRONIC ACID
     Indication: THORACIC VERTEBRAL FRACTURE
     Dosage: 150 MG, ONCE A MONTH
     Route: 048
     Dates: start: 2006, end: 20151112

REACTIONS (1)
  - Atypical femur fracture [Not Recovered/Not Resolved]

NARRATIVE: CASE EVENT DATE: 20151110
